FAERS Safety Report 14626535 (Version 1)
Quarter: 2018Q1

REPORT INFORMATION
  Report Type: Spontaneous
  Country: US (occurrence: US)
  Receive Date: 20180312
  Receipt Date: 20180312
  Transmission Date: 20180509
  Serious: No
  Sender: FDA-Public Use
  Company Number: US-TEVA-2018-US-864539

PATIENT
  Age: 74 Year
  Sex: Male

DRUGS (1)
  1. PREDNISONE. [Suspect]
     Active Substance: PREDNISONE
     Indication: ASTHMA
     Dosage: PREDNISONE SOMETIMES STARTING WITH AS MUCH AS 140 MG.
     Route: 048

REACTIONS (3)
  - Asthma [Recovered/Resolved]
  - Strongyloidiasis [Recovered/Resolved]
  - Urticaria [Recovered/Resolved]
